FAERS Safety Report 6119322-1 (Version None)
Quarter: 2009Q1

REPORT INFORMATION
  Report Type: 
  Country: None (occurrence: None)
  Receive Date: 20090316
  Receipt Date: 20090306
  Transmission Date: 20090719
  Serious: Yes (Hospitalization, Other)
  Sender: FDA-Public Use
  Company Number: PHBS2006NZ16613

PATIENT
  Sex: Male

DRUGS (5)
  1. CLOZARIL [Suspect]
     Indication: SCHIZOPHRENIA
     Dosage: 550 MG/D
     Route: 048
     Dates: start: 20020212, end: 20061001
  2. CLOZARIL [Suspect]
     Dosage: 550 MG, ONCE/SINGLE
     Route: 048
     Dates: start: 20061019, end: 20061019
  3. CLOZARIL [Suspect]
     Dosage: 12.5 MG TITRATED UP
     Route: 048
     Dates: start: 20061020
  4. CLOZARIL [Suspect]
     Dosage: 300 MG/DAY
     Route: 048
     Dates: start: 20061106
  5. CLONAZEPAM [Concomitant]
     Dosage: 4 MG/D

REACTIONS (7)
  - AGITATION [None]
  - ALTERED STATE OF CONSCIOUSNESS [None]
  - CONVULSION [None]
  - EMOTIONAL DISTRESS [None]
  - GRAND MAL CONVULSION [None]
  - NIGHT SWEATS [None]
  - TREATMENT NONCOMPLIANCE [None]
